FAERS Safety Report 12056034 (Version 4)
Quarter: 2016Q2

REPORT INFORMATION
  Report Type: Spontaneous
  Country: US (occurrence: US)
  Receive Date: 20160209
  Receipt Date: 20160513
  Transmission Date: 20160815
  Serious: No
  Sender: FDA-Public Use
  Company Number: US-009507513-1602USA002781

PATIENT
  Age: 27 Year
  Sex: Female
  Weight: 150.57 kg

DRUGS (1)
  1. IMPLANON [Suspect]
     Active Substance: ETONOGESTREL
     Dosage: UNK
     Route: 059
     Dates: start: 201202, end: 201604

REACTIONS (4)
  - Device difficult to use [Recovered/Resolved]
  - Weight increased [Unknown]
  - Complication associated with device [Recovered/Resolved]
  - Incorrect drug administration duration [Unknown]

NARRATIVE: CASE EVENT DATE: 201502
